FAERS Safety Report 4630916-2 (Version None)
Quarter: 2005Q2

REPORT INFORMATION
  Report Type: 
  Country: None (occurrence: None)
  Receive Date: 20050407
  Receipt Date: 20050407
  Transmission Date: 20051028
  Serious: Yes (Other)
  Sender: FDA-Public Use
  Company Number: None

PATIENT
  Age: 35 Year
  Sex: Male
  Weight: 84.8226 kg

DRUGS (4)
  1. FENTANYL 100 MCG AND 75 MCG [Suspect]
     Indication: ARTHRALGIA
     Dosage: 100 MCG Q 72 H, 75 MCG Q 72 H
     Dates: start: 20050308, end: 20050322
  2. FENTANYL 100 MCG AND 75 MCG [Suspect]
     Indication: HEAD INJURY
     Dosage: 100 MCG Q 72 H, 75 MCG Q 72 H
     Dates: start: 20050308, end: 20050322
  3. FENTANYL 100 MCG AND 75 MCG [Suspect]
     Indication: NECK PAIN
     Dosage: 100 MCG Q 72 H, 75 MCG Q 72 H
     Dates: start: 20050308, end: 20050322
  4. FENTANYL 100 MCG AND 75 MCG [Suspect]
     Indication: PAIN
     Dosage: 100 MCG Q 72 H, 75 MCG Q 72 H
     Dates: start: 20050308, end: 20050322

REACTIONS (7)
  - FEELING ABNORMAL [None]
  - HEART RATE INCREASED [None]
  - INADEQUATE ANALGESIA [None]
  - MALAISE [None]
  - NAUSEA [None]
  - PARALYSIS [None]
  - PHARMACEUTICAL PRODUCT COMPLAINT [None]
